FAERS Safety Report 7489203-X (Version None)
Quarter: 2011Q2

REPORT INFORMATION
  Report Type: 
  Country: None (occurrence: None)
  Receive Date: 20110518
  Receipt Date: 20110509
  Transmission Date: 20111010
  Serious: Yes (Hospitalization)
  Sender: FDA-Public Use
  Company Number: MX-B.I. PHARMACEUTICALS,INC./RIDGEFIELD-2011-MX-00116MX

PATIENT
  Sex: Male
  Weight: 70 kg

DRUGS (5)
  1. DABIGATRAN ETEXILATE [Suspect]
     Indication: ATRIAL FIBRILLATION
     Dosage: 75 MG
     Route: 048
     Dates: start: 20101222, end: 20110505
  2. AMIODARONA [Concomitant]
     Indication: ATRIAL FIBRILLATION
     Dosage: ONE TABLET DAILY
     Route: 048
     Dates: start: 20101222, end: 20110503
  3. ALDACTONE [Concomitant]
     Indication: ATRIAL FIBRILLATION
     Dosage: ONE TABLET DAILY
     Route: 048
     Dates: start: 20101222, end: 20110503
  4. FUROSEMIDE [Concomitant]
     Indication: DIURETIC THERAPY
     Dosage: 1/2 TABLET DAILY
     Route: 048
     Dates: start: 20101222, end: 20110503
  5. ISOSORBIDE DINITRATE [Concomitant]
     Indication: ATRIAL FIBRILLATION
     Dosage: ONE TABLET DAILY
     Route: 048
     Dates: start: 20110506

REACTIONS (3)
  - PRURITUS [None]
  - OEDEMA [None]
  - NEPHROPATHY [None]
